FAERS Safety Report 25933045 (Version 5)
Quarter: 2025Q4

REPORT INFORMATION
  Report Type: Report from Study
  Country: US (occurrence: US)
  Receive Date: 20251017
  Receipt Date: 20251231
  Transmission Date: 20260117
  Serious: Yes (Life-Threatening, Other)
  Sender: INSMED
  Company Number: US-20250710-7ca777

PATIENT
  Age: 51 Year
  Sex: Male

DRUGS (2)
  1. ARIKAYCE [Suspect]
     Active Substance: AMIKACIN
     Indication: Mycobacterium avium complex infection
     Dosage: 590 MILLIGRAM, QD
     Route: 055
     Dates: start: 20251002, end: 20251008
  2. ARIKAYCE [Suspect]
     Active Substance: AMIKACIN
     Dosage: 590 MILLIGRAM, QOD
     Route: 055
     Dates: start: 20251217

REACTIONS (25)
  - Oxygen saturation decreased [Not Recovered/Not Resolved]
  - Pneumonia bacterial [Unknown]
  - Pneumonia [Not Recovered/Not Resolved]
  - Gait disturbance [Unknown]
  - Renal disorder [Unknown]
  - Dysuria [Unknown]
  - Drug intolerance [Unknown]
  - Pulmonary congestion [Not Recovered/Not Resolved]
  - Insomnia [Unknown]
  - Abdominal discomfort [Recovering/Resolving]
  - Muscular weakness [Unknown]
  - Aphonia [Unknown]
  - Illness [Unknown]
  - Vomiting [Unknown]
  - Dizziness [Recovering/Resolving]
  - Cough [Unknown]
  - Nausea [Recovered/Resolved]
  - Dyspnoea [Recovering/Resolving]
  - Adverse event [Unknown]
  - Productive cough [Not Recovered/Not Resolved]
  - Feeling abnormal [Not Recovered/Not Resolved]
  - Product packaging difficult to open [Unknown]
  - Exposure via mucosa [Unknown]
  - Intentional product misuse [Unknown]
  - Device breakage [Unknown]

NARRATIVE: CASE EVENT DATE: 20051001
